FAERS Safety Report 18665084 (Version 13)
Quarter: 2022Q4

REPORT INFORMATION
  Report Type: Report from Study
  Country: US (occurrence: US)
  Receive Date: 20201225
  Receipt Date: 20221207
  Transmission Date: 20230113
  Serious: Yes (Hospitalization, Other)
  Sender: FDA-Public Use
  Company Number: US-TAKEDA-US202029589

PATIENT
  Sex: Female
  Weight: 91 kg

DRUGS (11)
  1. HUMAN IMMUNOGLOBULIN G [Suspect]
     Active Substance: HUMAN IMMUNOGLOBULIN G
     Indication: Primary immunodeficiency syndrome
     Dosage: 22 GRAM, 1/WEEK
     Route: 058
     Dates: start: 20220108
  2. HUMAN IMMUNOGLOBULIN G [Suspect]
     Active Substance: HUMAN IMMUNOGLOBULIN G
     Indication: Immunodeficiency common variable
     Dosage: 22 GRAM, 1/WEEK
     Route: 058
     Dates: start: 20220204
  3. HUMAN IMMUNOGLOBULIN G [Suspect]
     Active Substance: HUMAN IMMUNOGLOBULIN G
     Indication: Hypogammaglobulinaemia
  4. SUDAFED [Suspect]
     Active Substance: PSEUDOEPHEDRINE HYDROCHLORIDE
     Indication: Product used for unknown indication
     Dosage: UNK
     Route: 065
  5. XEOMIN [Suspect]
     Active Substance: INCOBOTULINUMTOXINA
     Indication: Product used for unknown indication
     Dosage: UNK
     Route: 065
     Dates: start: 20220907
  6. DUPIXENT [Suspect]
     Active Substance: DUPILUMAB
     Indication: Product used for unknown indication
     Dosage: UNK
     Route: 065
  7. AMOXICILLIN AND CLAVULANATE POTASSIUM [Concomitant]
     Active Substance: AMOXICILLIN\CLAVULANATE POTASSIUM
     Dosage: UNK
     Route: 065
  8. ACETAMINOPHEN [Concomitant]
     Active Substance: ACETAMINOPHEN
  9. DIPHENHYDRAMINE [Concomitant]
     Active Substance: DIPHENHYDRAMINE
  10. EPINEPHRINE [Concomitant]
     Active Substance: EPINEPHRINE
  11. LIDOCAINE [Concomitant]
     Active Substance: LIDOCAINE

REACTIONS (24)
  - Cervical spinal stenosis [Unknown]
  - Dyspnoea [Unknown]
  - Thrombosis [Unknown]
  - Upper respiratory tract infection [Not Recovered/Not Resolved]
  - Sinusitis [Not Recovered/Not Resolved]
  - Arthritis [Unknown]
  - Tendon disorder [Unknown]
  - Occipital neuralgia [Unknown]
  - Depression [Unknown]
  - Feeling abnormal [Unknown]
  - Hordeolum [Unknown]
  - Eye disorder [Unknown]
  - Arthropathy [Unknown]
  - Infusion related reaction [Unknown]
  - Eye allergy [Unknown]
  - Blood immunoglobulin A decreased [Unknown]
  - Dust allergy [Unknown]
  - Mite allergy [Unknown]
  - Asthma [Unknown]
  - Nausea [Unknown]
  - Somnolence [Unknown]
  - Dizziness [Unknown]
  - Balance disorder [Unknown]
  - Pain [Unknown]
